FAERS Safety Report 5587948-X (Version None)
Quarter: 2008Q1

REPORT INFORMATION
  Report Type: 
  Country: None (occurrence: None)
  Receive Date: 20080111
  Receipt Date: 20080102
  Transmission Date: 20080703
  Serious: Yes (Other)
  Sender: FDA-Public Use
  Company Number: FR-BAYER-FR-2007-043092

PATIENT
  Age: 36 Year
  Sex: Female
  Weight: 57 kg

DRUGS (3)
  1. MIRENA [Suspect]
     Indication: CONTRACEPTION
     Dosage: TOTAL DAILY DOSE: 20 ?G  UNIT DOSE: 20 ?G
     Route: 015
     Dates: start: 20070911, end: 20071008
  2. TARDYFERON B9 [Concomitant]
     Indication: ANAEMIA
     Route: 048
  3. PROFENID [Concomitant]
     Dosage: TOTAL DAILY DOSE: 100 MG  UNIT DOSE: 100 MG
     Route: 054
     Dates: start: 20070911, end: 20070911

REACTIONS (1)
  - DEPRESSION SUICIDAL [None]
